FAERS Safety Report 21114596 (Version 1)
Quarter: 2022Q3

REPORT INFORMATION
  Report Type: Spontaneous
  Country: US (occurrence: US)
  Receive Date: 20220721
  Receipt Date: 20220721
  Transmission Date: 20221026
  Serious: No
  Sender: FDA-Public Use
  Company Number: US-PERRIGO-22US002538

PATIENT
  Sex: Male

DRUGS (2)
  1. MINOXIDIL [Suspect]
     Active Substance: MINOXIDIL
     Indication: Alopecia
     Dosage: UNKNOWN, UNKNOWN
     Route: 061
     Dates: start: 202201
  2. FINASTERIDE [Suspect]
     Active Substance: FINASTERIDE
     Indication: Alopecia
     Dosage: 1 TABLET, QD
     Route: 048
     Dates: start: 202201

REACTIONS (8)
  - Dandruff [Unknown]
  - Application site dryness [Unknown]
  - Application site scab [Unknown]
  - Application site wound [Unknown]
  - Application site haemorrhage [Unknown]
  - Condition aggravated [Unknown]
  - Application site pruritus [Unknown]
  - Drug ineffective [Unknown]

NARRATIVE: CASE EVENT DATE: 20220101
